FAERS Safety Report 6619333-3 (Version None)
Quarter: 2010Q1

REPORT INFORMATION
  Report Type: 
  Country: None (occurrence: None)
  Receive Date: 20100308
  Receipt Date: 20100302
  Transmission Date: 20100710
  Serious: Yes (Other)
  Sender: FDA-Public Use
  Company Number: FR-BRISTOL-MYERS SQUIBB COMPANY-15000219

PATIENT
  Age: 54 Year
  Sex: Male

DRUGS (3)
  1. REYATAZ [Suspect]
     Dates: start: 20070101, end: 20100112
  2. VIREAD [Concomitant]
  3. KIVEXA [Concomitant]

REACTIONS (3)
  - CELL DEATH [None]
  - CHOLESTASIS [None]
  - JAUNDICE [None]
